FAERS Safety Report 8233365-3 (Version None)
Quarter: 2012Q1

REPORT INFORMATION
  Report Type: 
  Country: None (occurrence: None)
  Receive Date: 20120326
  Receipt Date: 20120105
  Transmission Date: 20120608
  Serious: No
  Sender: FDA-Public Use
  Company Number: US-MYLANLABS-2012S1000376

PATIENT
  Age: 15 Year
  Sex: Male
  Weight: 53.7 kg

DRUGS (2)
  1. TACROLIMUS [Suspect]
     Indication: AUTOIMMUNE DISORDER
     Route: 048
     Dates: start: 20111105, end: 20120104
  2. TACROLIMUS [Suspect]
     Route: 048
     Dates: start: 20111105, end: 20120104

REACTIONS (1)
  - DRUG LEVEL DECREASED [None]
